FAERS Safety Report 13069604 (Version 1)
Quarter: 2016Q4

REPORT INFORMATION
  Report Type: Spontaneous
  Country: US (occurrence: US)
  Receive Date: 20161228
  Receipt Date: 20161228
  Transmission Date: 20170207
  Serious: No
  Sender: FDA-Public Use
  Company Number: US-TEVA-719035ACC

PATIENT
  Sex: Female

DRUGS (3)
  1. TAKE ACTION [Suspect]
     Active Substance: LEVONORGESTREL
     Dates: start: 20161126, end: 20161126
  2. PLAN B [Suspect]
     Active Substance: LEVONORGESTREL
     Indication: POST COITAL CONTRACEPTION
     Dates: start: 20161111, end: 20161111
  3. TAKE ACTION [Suspect]
     Active Substance: LEVONORGESTREL
     Indication: POST COITAL CONTRACEPTION
     Dates: start: 20161118, end: 20161118

REACTIONS (1)
  - Menstruation delayed [Not Recovered/Not Resolved]

NARRATIVE: CASE EVENT DATE: 20161126
